FAERS Safety Report 7050350-8 (Version None)
Quarter: 2010Q4

REPORT INFORMATION
  Report Type: 
  Country: None (occurrence: None)
  Receive Date: 20101018
  Receipt Date: 20101008
  Transmission Date: 20110411
  Serious: Yes (Life-Threatening, Hospitalization, Other)
  Sender: FDA-Public Use
  Company Number: US-PFIZER INC-2010115928

PATIENT
  Sex: Male
  Weight: 87.5 kg

DRUGS (5)
  1. SUTENT [Suspect]
     Indication: RENAL CANCER METASTATIC
     Dosage: 50 MG, UNK
     Route: 048
     Dates: start: 20100601, end: 20100901
  2. AMLODIPINE BESILATE [Concomitant]
  3. HYDROCHLOROTHIAZIDE [Concomitant]
  4. RANITIDINE [Concomitant]
  5. SYNTHROID [Concomitant]

REACTIONS (2)
  - NECROTISING FASCIITIS [None]
  - WOUND [None]
